FAERS Safety Report 8492294-0 (Version None)
Quarter: 2012Q3

REPORT INFORMATION
  Report Type: 
  Country: None (occurrence: None)
  Receive Date: 20120706
  Receipt Date: 20120629
  Transmission Date: 20120928
  Serious: No
  Sender: FDA-Public Use
  Company Number: US-PFIZER INC-2012158008

PATIENT

DRUGS (3)
  1. ZITHROMAX [Suspect]
     Dosage: UNK
  2. SEPTRA [Suspect]
     Dosage: UNK
  3. KEFLEX [Suspect]
     Dosage: UNK

REACTIONS (1)
  - DRUG HYPERSENSITIVITY [None]
